FAERS Safety Report 22289310 (Version 1)
Quarter: 2023Q2

REPORT INFORMATION
  Report Type: Spontaneous
  Country: US (occurrence: None)
  Receive Date: 20230504
  Receipt Date: 20230504
  Transmission Date: 20230721
  Serious: Yes (Hospitalization)
  Sender: FDA-Public Use
  Company Number: None

PATIENT
  Sex: Female

DRUGS (1)
  1. STELARA [Suspect]
     Active Substance: USTEKINUMAB
     Indication: Proctitis ulcerative
     Dosage: 90MG  EVERY 8 WEEKS UNDER THE SKIN?
     Route: 058
     Dates: start: 202303

REACTIONS (3)
  - Hypotension [None]
  - Headache [None]
  - Dizziness [None]
